FAERS Safety Report 9269475 (Version 1)
Quarter: 2013Q2

REPORT INFORMATION
  Report Type: Spontaneous
  Country: GB (occurrence: GB)
  Receive Date: 20130503
  Receipt Date: 20130503
  Transmission Date: 20140414
  Serious: Yes (Other)
  Sender: FDA-Public Use
  Company Number: GB-PFIZER INC-2013135995

PATIENT
  Sex: 0

DRUGS (2)
  1. GEMCITABINE HYDROCHLORIDE [Suspect]
     Indication: CHEMOTHERAPY
     Dosage: UNK
  2. LUCENTIS [Interacting]
     Indication: MACULAR DEGENERATION
     Dosage: UNK

REACTIONS (3)
  - Drug interaction [Unknown]
  - Second primary malignancy [Unknown]
  - Pancreatic carcinoma [Unknown]
